FAERS Safety Report 9438383 (Version 1)
Quarter: 2013Q3

REPORT INFORMATION
  Report Type: Spontaneous
  Country: FR (occurrence: FR)
  Receive Date: 20130802
  Receipt Date: 20130802
  Transmission Date: 20140515
  Serious: Yes (Other)
  Sender: FDA-Public Use
  Company Number: FR-BAXTER-2013BAX029780

PATIENT
  Age: 48 Year
  Sex: Female

DRUGS (12)
  1. ENDOXAN 50 MG, COMPRIM? ENROB? [Suspect]
     Indication: INVASIVE DUCTAL BREAST CARCINOMA
     Route: 048
     Dates: start: 20130531
  2. ENDOXAN 50 MG, COMPRIM? ENROB? [Suspect]
     Route: 048
     Dates: start: 20130621
  3. ENDOXAN 50 MG, COMPRIM? ENROB? [Suspect]
     Route: 048
     Dates: start: 20130712
  4. DOCETAXEL [Suspect]
     Indication: INVASIVE DUCTAL BREAST CARCINOMA
     Route: 042
     Dates: start: 20130418, end: 20130418
  5. DOCETAXEL [Suspect]
     Route: 042
     Dates: start: 20130418, end: 20130418
  6. DOCETAXEL [Suspect]
     Indication: INVASIVE DUCTAL BREAST CARCINOMA
     Route: 042
     Dates: start: 20130510, end: 20130510
  7. DOCETAXEL [Suspect]
     Route: 042
     Dates: start: 20130510, end: 20130510
  8. FLUOROURACILE WINTHROP [Suspect]
     Indication: INVASIVE DUCTAL BREAST CARCINOMA
     Route: 042
     Dates: start: 20130531, end: 20130712
  9. EPIRUBICIN [Suspect]
     Indication: INVASIVE DUCTAL BREAST CARCINOMA
     Route: 042
     Dates: start: 20130531
  10. EPIRUBICIN [Suspect]
     Route: 042
     Dates: start: 20130621
  11. EPIRUBICIN [Suspect]
     Route: 042
     Dates: start: 20130712
  12. AMIODARONE [Concomitant]
     Indication: ARRHYTHMIA
     Route: 065

REACTIONS (1)
  - Onycholysis [Not Recovered/Not Resolved]
